FAERS Safety Report 6709007-2 (Version None)
Quarter: 2010Q2

REPORT INFORMATION
  Report Type: 
  Country: None (occurrence: None)
  Receive Date: 20100429
  Receipt Date: 20100422
  Transmission Date: 20101027
  Serious: Yes (Other)
  Sender: FDA-Public Use
  Company Number: SPV1-2010-00792

PATIENT
  Age: 56 Year
  Sex: Female

DRUGS (8)
  1. FOSRENOL [Suspect]
     Indication: HYPERPHOSPHATAEMIA
     Dosage: SEE IMAGE
     Route: 048
     Dates: start: 20090603, end: 20090804
  2. FOSRENOL [Suspect]
     Indication: HYPERPHOSPHATAEMIA
     Dosage: SEE IMAGE
     Route: 048
     Dates: start: 20090805, end: 20090917
  3. CALTAN (CALCIUM CARBONATE) [Concomitant]
  4. ZYLORIC /00003301/ [Concomitant]
  5. ALLOPURINOL [Concomitant]
  6. SELBEX (TEPRENONE) [Concomitant]
  7. NESP (DARBEPOETIN ALFA) [Concomitant]
  8. FESIN (SACCHARATED IRON OXIDE) [Concomitant]

REACTIONS (4)
  - ALANINE AMINOTRANSFERASE INCREASED [None]
  - ASPARTATE AMINOTRANSFERASE INCREASED [None]
  - BLOOD ALKALINE PHOSPHATASE INCREASED [None]
  - HEPATIC FUNCTION ABNORMAL [None]
